FAERS Safety Report 4884231-2 (Version None)
Quarter: 2005Q4

REPORT INFORMATION
  Report Type: 
  Country: None (occurrence: None)
  Receive Date: 20051201
  Receipt Date: 20050826
  Transmission Date: 20060501
  Serious: No
  Sender: FDA-Public Use
  Company Number: 2005PV001605

PATIENT
  Age: 58 Year
  Sex: Female
  Weight: 78.0187 kg

DRUGS (5)
  1. BYETTA [Suspect]
     Indication: DIABETES MELLITUS NON-INSULIN-DEPENDENT
     Dosage: 10 MCG;BID;SC
     Route: 058
     Dates: start: 20050701
  2. LANTUS [Concomitant]
  3. AMARYL [Concomitant]
  4. NAPROXEN [Concomitant]
  5. METFORMIN [Concomitant]

REACTIONS (5)
  - DECREASED APPETITE [None]
  - DYSGEUSIA [None]
  - EARLY SATIETY [None]
  - NAUSEA [None]
  - WEIGHT DECREASED [None]
